FAERS Safety Report 20504207 (Version 13)
Quarter: 2022Q2

REPORT INFORMATION
  Report Type: Spontaneous
  Country: AT (occurrence: AT)
  Receive Date: 20220222
  Receipt Date: 20220621
  Transmission Date: 20220721
  Serious: Yes (Disabling, Other)
  Sender: FDA-Public Use
  Company Number: AT-JNJFOC-20220234385

PATIENT
  Age: 5 Decade
  Sex: Female

DRUGS (10)
  1. RISPERDAL [Suspect]
     Active Substance: RISPERIDONE
     Indication: Drug therapy
     Dosage: UNTIL 04-FEB-2002
     Route: 065
     Dates: start: 20020123
  2. RISPERDAL [Suspect]
     Active Substance: RISPERIDONE
     Indication: Restlessness
  3. TEGRETOL [Suspect]
     Active Substance: CARBAMAZEPINE
     Indication: Prophylaxis
     Route: 065
  4. TRAZODONE HYDROCHLORIDE [Suspect]
     Active Substance: TRAZODONE HYDROCHLORIDE
     Indication: Sleep disorder therapy
     Dosage: 150MG TABLETS
     Route: 065
  5. CYANOCOBALAMIN\PYRIDOXINE\RIBOFLAVIN\THIAMINE [Suspect]
     Active Substance: CYANOCOBALAMIN\PYRIDOXINE\RIBOFLAVIN\THIAMINE
     Route: 065
  6. LEVOTHYROXINE SODIUM\LIOTHYRONINE SODIUM [Concomitant]
     Active Substance: LEVOTHYROXINE SODIUM\LIOTHYRONINE SODIUM
     Indication: Thyroid therapy
     Dosage: 1-0-0
     Route: 065
  7. LYRICA [Concomitant]
     Active Substance: PREGABALIN
     Dosage: 50MG HARD CAPSULES
     Route: 065
  8. BENSERAZIDE\LEVODOPA [Concomitant]
     Active Substance: BENSERAZIDE\LEVODOPA
     Dosage: 100MG/25MG TABLETS
     Route: 065
  9. BENSERAZIDE\LEVODOPA [Concomitant]
     Active Substance: BENSERAZIDE\LEVODOPA
     Dosage: 100MG/25MG RETARD CAPSULES
     Route: 065
  10. MIRTAZAPINE [Concomitant]
     Active Substance: MIRTAZAPINE
     Dosage: 30MG FILM TABLETS
     Route: 065

REACTIONS (17)
  - Parkinson^s disease [Unknown]
  - Suicidal ideation [Unknown]
  - Restless legs syndrome [Unknown]
  - Bronchitis [Unknown]
  - Galactorrhoea [Unknown]
  - Movement disorder [Unknown]
  - Dyskinesia [Unknown]
  - Dyspnoea [Unknown]
  - Skin disorder [Unknown]
  - Blood creatine phosphokinase increased [Unknown]
  - Gamma-glutamyltransferase increased [Unknown]
  - Sleep apnoea syndrome [Unknown]
  - Bruxism [Unknown]
  - Eye disorder [Unknown]
  - Condition aggravated [Unknown]
  - Off label use [Unknown]
  - Product use in unapproved indication [Unknown]

NARRATIVE: CASE EVENT DATE: 20020101
